FAERS Safety Report 22166198 (Version 1)
Quarter: 2023Q2

REPORT INFORMATION
  Report Type: Spontaneous
  Country: CN (occurrence: CN)
  Receive Date: 20230403
  Receipt Date: 20230403
  Transmission Date: 20230721
  Serious: Yes (Hospitalization, Other)
  Sender: FDA-Public Use
  Company Number: CN-HALEON-CNCH2023APC013980

PATIENT

DRUGS (3)
  1. IBUPROFEN [Suspect]
     Active Substance: IBUPROFEN
     Indication: Headache
     Dosage: 400 MG, BID
     Route: 048
     Dates: start: 20230305, end: 20230305
  2. OSELTAMIVIR PHOSPHATE [Suspect]
     Active Substance: OSELTAMIVIR PHOSPHATE
     Indication: Chemotherapy
     Dosage: 75 MG, QD
     Route: 048
     Dates: start: 20230301, end: 20230306
  3. TAMIFLU [Concomitant]
     Active Substance: OSELTAMIVIR PHOSPHATE
     Indication: Chemotherapy
     Dosage: 75 MG, QD
     Route: 048
     Dates: start: 20230228, end: 20230228

REACTIONS (10)
  - Chromaturia [Recovering/Resolving]
  - Yellow skin [Recovering/Resolving]
  - Ocular icterus [Recovering/Resolving]
  - Nausea [Recovered/Resolved]
  - Abdominal distension [Recovering/Resolving]
  - Drug-induced liver injury [Recovering/Resolving]
  - Hepatomegaly [Recovering/Resolving]
  - Liver injury [Recovering/Resolving]
  - Lipid metabolism disorder [Recovering/Resolving]
  - Hepatic steatosis [Recovering/Resolving]

NARRATIVE: CASE EVENT DATE: 20230301
